FAERS Safety Report 6261754-5 (Version None)
Quarter: 2009Q3

REPORT INFORMATION
  Report Type: 
  Country: None (occurrence: None)
  Receive Date: 20090702
  Receipt Date: 20090309
  Transmission Date: 20100115
  Serious: No
  Sender: FDA-Public Use
  Company Number: 1000005106

PATIENT
  Sex: Female

DRUGS (1)
  1. BYSTOLIC [Suspect]
     Dosage: 10 MG (10 MG,  1 IN 1), ORAL
     Route: 048

REACTIONS (3)
  - COUGH [None]
  - ERYTHEMA [None]
  - FACIAL PAIN [None]
